FAERS Safety Report 6055468-4 (Version None)
Quarter: 2009Q1

REPORT INFORMATION
  Report Type: 
  Country: None (occurrence: None)
  Receive Date: 20090128
  Receipt Date: 20090120
  Transmission Date: 20090719
  Serious: Yes (Other)
  Sender: FDA-Public Use
  Company Number: US-AVENTIS-200910599US

PATIENT
  Age: 30 Year
  Sex: Female

DRUGS (2)
  1. LOVENOX [Suspect]
     Indication: PULMONARY EMBOLISM
     Dosage: DOSE: 17 PREFILLED 150 MG SYRINGES
  2. LOVENOX [Suspect]

REACTIONS (1)
  - INTENTIONAL OVERDOSE [None]
